FAERS Safety Report 5124960-9 (Version None)
Quarter: 2006Q4

REPORT INFORMATION
  Report Type: 
  Country: None (occurrence: None)
  Receive Date: 20061010
  Receipt Date: 20061010
  Transmission Date: 20070319
  Serious: Yes (Other)
  Sender: FDA-Public Use
  Company Number: None

PATIENT
  Sex: Female
  Weight: 86.1834 kg

DRUGS (4)
  1. TUBERSOL [Suspect]
     Dosage: 0.1 ML INTRADERMAL
     Route: 023
     Dates: start: 20060906
  2. TUBERSOL [Suspect]
     Dosage: 0.1 ML INTRADERMAL
     Route: 023
     Dates: start: 20060915
  3. TUBERSOL [Suspect]
     Dosage: 0.1 ML INTRADERMAL
     Route: 023
     Dates: start: 20060929
  4. TUBERSOL [Suspect]

REACTIONS (2)
  - CHEST DISCOMFORT [None]
  - DYSPNOEA [None]
